FAERS Safety Report 9752397 (Version 3)
Quarter: 2014Q2

REPORT INFORMATION
  Report Type: Spontaneous
  Country: US (occurrence: US)
  Receive Date: 20131213
  Receipt Date: 20140507
  Transmission Date: 20141212
  Serious: Yes (Other)
  Sender: FDA-Public Use
  Company Number: US-PFIZER INC-2013356734

PATIENT
  Age: 52 Year
  Sex: Female
  Weight: 57.6 kg

DRUGS (10)
  1. LYRICA [Suspect]
     Indication: FIBROMYALGIA
     Dosage: 100 MG, 3X/DAY
     Dates: end: 20131014
  2. LYRICA [Suspect]
     Indication: NEURALGIA
     Dosage: 100 MG, 3X/DAY
  3. LYRICA [Suspect]
     Indication: PAIN IN EXTREMITY
  4. LYRICA [Suspect]
     Indication: VULVOVAGINAL PAIN
  5. MOTRIN [Suspect]
     Indication: PAIN
     Dosage: 600 MG, 4X/DAY
  6. PERCOCET [Suspect]
     Indication: PAIN
     Dosage: 10 MG, 3X/DAY
  7. PERCOCET [Suspect]
     Indication: NECK PAIN
     Dosage: 10 MG, UNK
  8. PERCOCET [Suspect]
     Indication: ARTHRALGIA
  9. PERCOCET [Suspect]
     Indication: PAIN IN EXTREMITY
  10. PERCOCET [Suspect]
     Indication: NEURALGIA

REACTIONS (6)
  - Off label use [Unknown]
  - Glucose tolerance impaired [Unknown]
  - Renal disorder [Unknown]
  - Weight increased [Unknown]
  - Weight decreased [Unknown]
  - Drug ineffective [Unknown]
